FAERS Safety Report 5772040-1 (Version None)
Quarter: 2008Q2

REPORT INFORMATION
  Report Type: 
  Country: None (occurrence: None)
  Receive Date: 20080613
  Receipt Date: 20080605
  Transmission Date: 20081010
  Serious: Yes (Hospitalization)
  Sender: FDA-Public Use
  Company Number: TW-ASTRAZENECA-2008AP04324

PATIENT
  Age: 18710 Day
  Sex: Female

DRUGS (2)
  1. IRESSA [Suspect]
     Indication: NON-SMALL CELL LUNG CANCER
     Route: 048
     Dates: start: 20050113, end: 20050301
  2. CYPROHEPTADIN [Concomitant]
     Route: 048

REACTIONS (4)
  - BLISTER [None]
  - SKIN LESION [None]
  - VAGINAL PAIN [None]
  - VAGINAL SWELLING [None]
